FAERS Safety Report 17012910 (Version 2)
Quarter: 2019Q4

REPORT INFORMATION
  Report Type: Spontaneous
  Country: CA (occurrence: CA)
  Receive Date: 20191109
  Receipt Date: 20191219
  Transmission Date: 20200122
  Serious: Yes (Death)
  Sender: FDA-Public Use
  Company Number: CA-TEVA-2019-CA-1133081

PATIENT
  Age: 88 Year
  Sex: Male
  Weight: 54 kg

DRUGS (8)
  1. DEFERASIROX. [Suspect]
     Active Substance: DEFERASIROX
     Indication: IRON OVERLOAD
     Dosage: 1000 MILLIGRAM DAILY;
     Route: 048
     Dates: start: 2019, end: 2019
  2. KCL SOLUTION A 20% [Concomitant]
  3. ASA [Concomitant]
     Active Substance: ASPIRIN
  4. METOPROLOL. [Concomitant]
     Active Substance: METOPROLOL
  5. DOXYCYCLINE. [Concomitant]
     Active Substance: DOXYCYCLINE
  6. RABEPRAZOLE [Concomitant]
     Active Substance: RABEPRAZOLE
  7. VITAMIN B12 [Concomitant]
     Active Substance: CYANOCOBALAMIN
  8. ROSUVASTATIN. [Concomitant]
     Active Substance: ROSUVASTATIN

REACTIONS (1)
  - Acute kidney injury [Fatal]

NARRATIVE: CASE EVENT DATE: 2019
